FAERS Safety Report 14567790 (Version 1)
Quarter: 2018Q1

REPORT INFORMATION
  Report Type: Spontaneous
  Country: US (occurrence: US)
  Receive Date: 20180223
  Receipt Date: 20180223
  Transmission Date: 20180509
  Serious: No
  Sender: FDA-Public Use
  Company Number: US-FERRINGPH-2017FE00140

PATIENT
  Sex: Female

DRUGS (1)
  1. DESMOPRESSIN [Suspect]
     Active Substance: DESMOPRESSIN
     Indication: PRODUCT USED FOR UNKNOWN INDICATION
     Dosage: 0.005 MG, 2 TIMES DAILY
     Route: 045

REACTIONS (5)
  - Incorrect dose administered [Unknown]
  - Blood sodium decreased [Unknown]
  - Syncope [Unknown]
  - Blood potassium decreased [Unknown]
  - Drug dispensing error [Unknown]
